FAERS Safety Report 8930523 (Version 2)
Quarter: 2014Q2

REPORT INFORMATION
  Report Type: Report from Study
  Country: DE (occurrence: DE)
  Receive Date: 20121128
  Receipt Date: 20140409
  Transmission Date: 20141212
  Serious: Yes (Hospitalization)
  Sender: FDA-Public Use
  Company Number: PHHO2012DE016360

PATIENT
  Sex: 0

DRUGS (2)
  1. EVEROLIMUS [Suspect]
     Indication: BREAST CANCER METASTATIC
     Dosage: 10 MG, UNK
     Route: 048
     Dates: start: 20120814, end: 20121031
  2. EXEMESTANE [Suspect]
     Indication: BREAST CANCER METASTATIC
     Dosage: 25 MG, UNK
     Dates: start: 20120814

REACTIONS (3)
  - Metastases to central nervous system [Unknown]
  - Colitis [Unknown]
  - Pneumonia [Unknown]
